FAERS Safety Report 6327639-0 (Version None)
Quarter: 2009Q3

REPORT INFORMATION
  Report Type: 
  Country: None (occurrence: None)
  Receive Date: 20090825
  Receipt Date: 20090818
  Transmission Date: 20100115
  Serious: Yes (Other)
  Sender: FDA-Public Use
  Company Number: US-AMGEN-KDL361076

PATIENT
  Sex: Female
  Weight: 59.9 kg

DRUGS (9)
  1. PROCRIT [Suspect]
     Indication: RENAL FAILURE CHRONIC
     Dates: start: 20090601
  2. ACTOS [Suspect]
     Route: 048
     Dates: start: 20040101, end: 20090725
  3. DIOVAN [Concomitant]
     Route: 048
  4. DIOVAN [Concomitant]
  5. ALLOPURINOL [Concomitant]
     Route: 048
  6. HUMULIN R [Concomitant]
  7. ASPIRIN [Concomitant]
     Route: 048
     Dates: start: 20090601
  8. HUMULIN R [Concomitant]
     Route: 058
  9. HUMULIN N [Concomitant]

REACTIONS (18)
  - ABDOMINAL PAIN UPPER [None]
  - ANAEMIA [None]
  - ASTHENIA [None]
  - BLOOD PRESSURE SYSTOLIC DECREASED [None]
  - DECREASED APPETITE [None]
  - FATIGUE [None]
  - FLATULENCE [None]
  - FLUID RETENTION [None]
  - GOUT [None]
  - HYPOGLYCAEMIA [None]
  - INSOMNIA [None]
  - MALAISE [None]
  - NAUSEA [None]
  - OEDEMA PERIPHERAL [None]
  - PAIN [None]
  - RENAL DISORDER [None]
  - RETINOPATHY [None]
  - VISUAL IMPAIRMENT [None]
